FAERS Safety Report 12667985 (Version 2)
Quarter: 2016Q3

REPORT INFORMATION
  Report Type: Report from Study
  Country: NL (occurrence: NL)
  Receive Date: 20160819
  Receipt Date: 20160901
  Transmission Date: 20161109
  Serious: Yes (Hospitalization)
  Sender: FDA-Public Use
  Company Number: NL-VERTEX PHARMACEUTICALS-2016-004803

PATIENT
  Age: 22 Year
  Sex: Male
  Weight: 71 kg

DRUGS (20)
  1. SALBUTAMOL [Concomitant]
     Active Substance: ALBUTEROL
     Indication: DYSPNOEA
     Dosage: 1-2 PUFFS IF NECESSARY
     Route: 055
  2. TOBRAMYCINE [Concomitant]
     Indication: CYSTIC FIBROSIS
     Dosage: 112 MG, BID ALTERNATED WITH AZTREONAM
     Route: 055
  3. HYPERTONIC SALINE SOLUTION [Concomitant]
     Active Substance: SODIUM CHLORIDE
     Indication: SPUTUM ABNORMAL
     Dosage: 4 ML, BID
  4. OMEPRAZOL [Concomitant]
     Active Substance: OMEPRAZOLE
     Indication: GASTROOESOPHAGEAL REFLUX DISEASE
     Dosage: 1 DF, QD
  5. NACL [Concomitant]
     Active Substance: SODIUM CHLORIDE
     Dosage: 1 DF, TIDHEN TEMP. IS ABOVE 25 DEGREE CELCIUS
  6. DORNASE ALFA [Concomitant]
     Active Substance: DORNASE ALFA
     Dosage: 1 VIAL, QD VIA NEBULIZER
     Route: 055
  7. CREON [Concomitant]
     Active Substance: PANCRELIPASE AMYLASE\PANCRELIPASE LIPASE\PANCRELIPASE PROTEASE
     Indication: PANCREATIC INSUFFICIENCY
     Dosage: APPROXIMATELY 10 PER DAY
  8. PREDNISON [Concomitant]
     Active Substance: PREDNISONE
     Indication: BRONCHOPULMONARY ASPERGILLOSIS ALLERGIC
     Dosage: UNK, QD
  9. AZTREONAM. [Concomitant]
     Active Substance: AZTREONAM
     Indication: CYSTIC FIBROSIS
     Dosage: UNK, TID ALTERNATED WITH TOBRAMYCIN
  10. FENOTEROL W/IPRATROPIUM [Concomitant]
     Active Substance: FENOTEROL
     Indication: ASTHMA
     Dosage: QID 2, BID 2 IF NECESSARY
  11. ORKAMBI [Suspect]
     Active Substance: IVACAFTOR\LUMACAFTOR
     Indication: CYSTIC FIBROSIS
     Dosage: 400-250 MG, BID
     Route: 048
     Dates: start: 20160719, end: 20160722
  12. CREON [Concomitant]
     Active Substance: PANCRELIPASE AMYLASE\PANCRELIPASE LIPASE\PANCRELIPASE PROTEASE
     Indication: PANCREATIC INSUFFICIENCY
     Dosage: APPROXIMATELY 2 PER DAY
  13. AZITROMYCINE [Concomitant]
     Indication: CYSTIC FIBROSIS
     Dosage: 1 DF, QD
  14. ADEKS [Concomitant]
     Indication: HYPOVITAMINOSIS
     Dosage: 1 DF, BID
  15. URSOCHOL [Concomitant]
     Active Substance: URSODIOL
     Dosage: 2 DF, QD
  16. BECLOMETASONE DIPROPIONATE W/FORMOTEROL FUMAR [Concomitant]
     Active Substance: BECLOMETHASONE\FORMOTEROL
     Indication: ASTHMA
  17. BECLOMETASONE DIPROPIONATE W/FORMOTEROL FUMAR [Concomitant]
     Active Substance: BECLOMETHASONE\FORMOTEROL
     Indication: DYSPNOEA
     Dosage: 100/6 MCG 2 PUFFS BID
     Route: 055
  18. MACROGOL [Concomitant]
     Active Substance: POLYETHYLENE GLYCOLS
     Indication: CONSTIPATION
     Dosage: IF NECESSARY, 1-2 PER DAY
  19. IPRATROPIUM/SALBUTAMOL [Concomitant]
     Active Substance: ALBUTEROL\IPRATROPIUM BROMIDE
     Indication: DYSPNOEA
     Dosage: QID, IF NECESSARY
  20. AVAMYS [Concomitant]
     Active Substance: FLUTICASONE FUROATE
     Indication: RHINITIS
     Dosage: 27.5 ?G, UNK

REACTIONS (2)
  - Oxygen saturation decreased [Recovered/Resolved]
  - Dyspnoea [Recovered/Resolved]

NARRATIVE: CASE EVENT DATE: 20160720
